FAERS Safety Report 17251055 (Version 3)
Quarter: 2020Q4

REPORT INFORMATION
  Report Type: Report from Study
  Country: US (occurrence: US)
  Receive Date: 20200109
  Receipt Date: 20201129
  Transmission Date: 20210113
  Serious: Yes (Other)
  Sender: FDA-Public Use
  Company Number: NVSC2020US003398

PATIENT
  Age: 68 Year
  Sex: Male

DRUGS (2)
  1. ENTRESTO [Suspect]
     Active Substance: SACUBITRIL\VALSARTAN
     Dosage: 1 DF (24/26 MG), BID
     Route: 048
     Dates: start: 202009
  2. ENTRESTO [Suspect]
     Active Substance: SACUBITRIL\VALSARTAN
     Indication: PRODUCT USED FOR UNKNOWN INDICATION
     Dosage: 1 DF (24 MG SACUBITRIL/26 MG VALSARTAN), BID
     Route: 048
     Dates: start: 20191201

REACTIONS (6)
  - Hypoaesthesia [Unknown]
  - Pulmonary congestion [Recovering/Resolving]
  - Back pain [Unknown]
  - Cough [Recovering/Resolving]
  - Arthralgia [Unknown]
  - Muscle spasms [Unknown]

NARRATIVE: CASE EVENT DATE: 20191223
